FAERS Safety Report 7324097-4 (Version None)
Quarter: 2011Q1

REPORT INFORMATION
  Report Type: 
  Country: None (occurrence: None)
  Receive Date: 20110201
  Receipt Date: 20101213
  Transmission Date: 20110831
  Serious: Yes (Hospitalization, Other)
  Sender: FDA-Public Use
  Company Number: 253041USA

PATIENT
  Sex: Female

DRUGS (2)
  1. LOSEASONIQUE [Suspect]
     Dosage: ORAL
     Route: 048
     Dates: start: 20090301, end: 20100512
  2. LEVOTHYROXINE SODIUM [Concomitant]

REACTIONS (1)
  - CEREBROVASCULAR ACCIDENT [None]
